FAERS Safety Report 10973424 (Version 3)
Quarter: 2015Q3

REPORT INFORMATION
  Report Type: Report from Study
  Country: MX (occurrence: MX)
  Receive Date: 20150401
  Receipt Date: 20150804
  Transmission Date: 20151125
  Serious: Yes (Hospitalization)
  Sender: FDA-Public Use
  Company Number: MX-ROCHE-1294852

PATIENT
  Sex: Female
  Weight: 63 kg

DRUGS (1)
  1. ROACTEMRA [Suspect]
     Active Substance: TOCILIZUMAB
     Indication: RHEUMATOID ARTHRITIS
     Dosage: LAST DOSE : 24/SEP/2013
     Route: 042
     Dates: start: 201305, end: 20130924

REACTIONS (2)
  - Premature rupture of membranes [Recovered/Resolved]
  - Exposure via father [Unknown]
